FAERS Safety Report 25498211 (Version 1)
Quarter: 2025Q3

REPORT INFORMATION
  Report Type: Spontaneous
  Country: US (occurrence: US)
  Receive Date: 20250701
  Receipt Date: 20250701
  Transmission Date: 20251021
  Serious: Yes (Other)
  Sender: LUPIN
  Company Number: US-LUPIN PHARMACEUTICALS INC.-2025-05177

PATIENT
  Age: 31 Year
  Sex: Male

DRUGS (21)
  1. SERTRALINE [Interacting]
     Active Substance: SERTRALINE HYDROCHLORIDE
     Indication: Anxiety
     Dosage: 25 MILLIGRAM, QD
     Route: 065
  2. SERTRALINE [Interacting]
     Active Substance: SERTRALINE HYDROCHLORIDE
     Dosage: 50 MILLIGRAM, QD
     Route: 065
  3. SERTRALINE [Interacting]
     Active Substance: SERTRALINE HYDROCHLORIDE
     Dosage: 100 MILLIGRAM, QD
     Route: 065
  4. SERTRALINE [Interacting]
     Active Substance: SERTRALINE HYDROCHLORIDE
     Dosage: 150 MILLIGRAM, QD
     Route: 065
  5. SERTRALINE [Interacting]
     Active Substance: SERTRALINE HYDROCHLORIDE
     Dosage: 200 MILLIGRAM, QD (INCREASED EVERY OTHER MONTH TO A DOSE OF 200 MG/DAY)
     Route: 065
  6. SERTRALINE [Interacting]
     Active Substance: SERTRALINE HYDROCHLORIDE
     Dosage: 100 MILLIGRAM, QD
     Route: 065
  7. VALPROIC ACID [Interacting]
     Active Substance: VALPROIC ACID
     Indication: Aggression
     Dosage: 625 MILLIGRAM, BID
     Route: 065
  8. VALPROIC ACID [Interacting]
     Active Substance: VALPROIC ACID
     Indication: Euphoric mood
     Dosage: 500 MILLIGRAM, BID
     Route: 065
  9. CLONAZEPAM [Interacting]
     Active Substance: CLONAZEPAM
     Indication: Anxiety
     Dosage: 0.25 MG IN MORNING AND 0.5 MG AT NIGHT , BID
     Route: 065
  10. CLONAZEPAM [Interacting]
     Active Substance: CLONAZEPAM
     Dosage: 0.5 MILLIGRAM, BID (INCREASED)
     Route: 065
  11. CLONAZEPAM [Interacting]
     Active Substance: CLONAZEPAM
     Route: 065
  12. CLONIDINE [Interacting]
     Active Substance: CLONIDINE
     Indication: Anxiety
     Dosage: 0.1 MILLIGRAM, QD (AT DINNER TIME)
     Route: 065
  13. CLONIDINE [Interacting]
     Active Substance: CLONIDINE
     Dosage: 0.05 MILLIGRAM, TID
     Route: 065
  14. MODAFINIL [Interacting]
     Active Substance: MODAFINIL
     Indication: Somnolence
     Dosage: 100 MILLIGRAM, QD (AM)
     Route: 065
  15. RISPERIDONE [Interacting]
     Active Substance: RISPERIDONE
     Indication: Delusion
     Dosage: 0.5 MILLIGRAM, BID
     Route: 065
  16. RISPERIDONE [Interacting]
     Active Substance: RISPERIDONE
     Dosage: 0.5 MG IN MORNING AND 1.0 MG AT NIGHT BID (INCREASED)
     Route: 065
  17. RISPERIDONE [Interacting]
     Active Substance: RISPERIDONE
     Route: 065
  18. RISPERIDONE [Interacting]
     Active Substance: RISPERIDONE
     Dosage: 0.25 MILLIGRAM, QD
     Route: 065
  19. LITHIUM [Concomitant]
     Active Substance: LITHIUM
     Indication: Aggression
     Dosage: 750 MILLIGRAM, QD
     Route: 065
  20. LITHIUM [Concomitant]
     Active Substance: LITHIUM
     Indication: Euphoric mood
     Dosage: 600 MILLIGRAM, QD (DECREASED)
     Route: 065
  21. LITHIUM [Concomitant]
     Active Substance: LITHIUM
     Dosage: 900 MG IN THE MORNING AND 600 MG AT DINNERTIME BID
     Route: 065

REACTIONS (4)
  - Affective disorder [Recovering/Resolving]
  - Behaviour disorder [Recovering/Resolving]
  - Drug interaction [Recovering/Resolving]
  - Condition aggravated [Recovering/Resolving]
